FAERS Safety Report 4980274-9 (Version None)
Quarter: 2006Q2

REPORT INFORMATION
  Report Type: 
  Country: None (occurrence: None)
  Receive Date: 20060420
  Receipt Date: 20060420
  Transmission Date: 20061013
  Serious: Yes (Hospitalization)
  Sender: FDA-Public Use
  Company Number: None

PATIENT
  Age: 26 Year
  Sex: Male
  Weight: 88 kg

DRUGS (8)
  1. LITHIUM [Suspect]
  2. CYCLOBENZAPRINE HCL [Concomitant]
  3. GABAPENTIN [Concomitant]
  4. QUETIAPINE FUMARATE [Concomitant]
  5. PROPRANOLOL HYDROCHLORIDE [Concomitant]
  6. CARBAMAZEPINE [Concomitant]
  7. VENLAFAXINE HCL [Concomitant]
  8. LORATADINE [Concomitant]

REACTIONS (1)
  - THERAPEUTIC AGENT TOXICITY [None]
